FAERS Safety Report 8974454 (Version 7)
Quarter: 2013Q3

REPORT INFORMATION
  Report Type: Spontaneous
  Country: US (occurrence: None)
  Receive Date: 20121212
  Receipt Date: 20130724
  Transmission Date: 20140515
  Serious: Yes (Death, Hospitalization, Other)
  Sender: FDA-Public Use
  Company Number: US-JNJFOC-20121201035

PATIENT
  Age: 63 Year
  Sex: Female
  Weight: 81.6 kg

DRUGS (3)
  1. DECITABINE (DECITABINE) LYOPHILIZED POWDER [Suspect]
     Indication: ACUTE MYELOID LEUKAEMIA
     Dosage: 20 MG/M2, IN 1 CYCLICAL, INTRAVENOUS
     Route: 042
     Dates: start: 20121105, end: 20121115
  2. VELCADE (BORTEZOMIB) [Suspect]
     Indication: ACUTE MYELOID LEUKAEMIA
     Dosage: 1.3 MG/M2, IN 1 CYCLICAL, SUBCUTANEOUS
     Route: 058
     Dates: start: 20111105, end: 20121108
  3. HYDROXYUREA (HYDROXYCARBAMIDE) [Suspect]
     Indication: PRODUCT USED FOR UNKNOWN INDICATION
     Dosage: 2 G, IN 8 HOUR, UNKNOWN
     Dates: start: 20121029, end: 20121101

REACTIONS (15)
  - Convulsion [None]
  - Mental status changes [None]
  - White blood cell count decreased [None]
  - Haemoglobin decreased [None]
  - Haematocrit decreased [None]
  - Platelet count decreased [None]
  - Blood urea increased [None]
  - Blood creatinine increased [None]
  - Blood glucose increased [None]
  - Posterior reversible encephalopathy syndrome [None]
  - Hypoalbuminaemia [None]
  - Renal failure acute [None]
  - Hypophosphataemia [None]
  - Tumour lysis syndrome [None]
  - Lymphocyte count decreased [None]
